FAERS Safety Report 6154731-6 (Version None)
Quarter: 2009Q2

REPORT INFORMATION
  Report Type: 
  Country: None (occurrence: None)
  Receive Date: 20090414
  Receipt Date: 20090407
  Transmission Date: 20091009
  Serious: Yes (Death, Hospitalization)
  Sender: FDA-Public Use
  Company Number: B0564190A

PATIENT
  Sex: Male
  Weight: 4.9 kg

DRUGS (7)
  1. LEXIVA [Suspect]
     Indication: HIV INFECTION
     Dosage: 4.4ML TWICE PER DAY
     Route: 048
     Dates: start: 20090226, end: 20090305
  2. RITONAVIR [Suspect]
     Indication: HIV INFECTION
     Dosage: .6ML TWICE PER DAY
     Route: 048
     Dates: start: 20090226, end: 20090305
  3. HERBAL MEDICATION [Suspect]
  4. ABACAVIR [Concomitant]
     Indication: HIV INFECTION
     Dosage: 40MG TWICE PER DAY
     Route: 048
     Dates: start: 20090226, end: 20090305
  5. LAMIVUDINE [Concomitant]
     Indication: HIV INFECTION
     Dosage: 20MG TWICE PER DAY
     Route: 048
     Dates: start: 20090226, end: 20090305
  6. BACTRIM [Concomitant]
     Dosage: 2.5ML PER DAY
     Route: 048
     Dates: start: 20090210, end: 20090305
  7. FERROUS GLUCONATE [Concomitant]
     Dosage: 2.5ML PER DAY
     Route: 048
     Dates: start: 20090217, end: 20090305

REACTIONS (18)
  - ACIDOSIS [None]
  - AIDS ENCEPHALOPATHY [None]
  - CARDIAC ARREST [None]
  - COUGH [None]
  - DIARRHOEA [None]
  - DRUG TOXICITY [None]
  - DYSPNOEA [None]
  - FAECES DISCOLOURED [None]
  - GASTROENTERITIS [None]
  - HAEMATEMESIS [None]
  - HYPOXIA [None]
  - IRRITABILITY [None]
  - LETHARGY [None]
  - MULTI-ORGAN FAILURE [None]
  - ORAL CANDIDIASIS [None]
  - RESPIRATION ABNORMAL [None]
  - RESPIRATORY DISTRESS [None]
  - VOMITING [None]
